FAERS Safety Report 8924013 (Version 3)
Quarter: 2012Q4

REPORT INFORMATION
  Report Type: 
  Country: US (occurrence: US)
  Receive Date: 20121126
  Receipt Date: 20121220
  Transmission Date: 20130627
  Serious: No
  Sender: FDA-Public Use
  Company Number: US-009507513-1211USA008021

PATIENT
  Age: 44 None
  Sex: Male

DRUGS (3)
  1. PEGINTRON [Suspect]
     Indication: HEPATITIS C
     Dosage: UNK
     Route: 058
     Dates: start: 20121116
  2. RIBAVIRIN [Suspect]
     Indication: HEPATITIS C
     Dosage: UNK
     Route: 048
     Dates: start: 20121116
  3. VICTRELIS [Suspect]
     Indication: HEPATITIS C
     Dosage: UNK
     Route: 048
     Dates: start: 20121215

REACTIONS (9)
  - Nausea [Unknown]
  - Myalgia [Unknown]
  - Weight decreased [Unknown]
  - Fatigue [Unknown]
  - Pain [Unknown]
  - Poor quality sleep [Unknown]
  - Headache [Unknown]
  - Stress [Unknown]
  - Back pain [Unknown]
